FAERS Safety Report 19929437 (Version 1)
Quarter: 2021Q4

REPORT INFORMATION
  Report Type: Spontaneous
  Country: US (occurrence: US)
  Receive Date: 20211007
  Receipt Date: 20211007
  Transmission Date: 20220304
  Serious: No
  Sender: FDA-Public Use
  Company Number: US-PFIZER INC-2020330551

PATIENT
  Age: 49 Year
  Sex: Male

DRUGS (2)
  1. SOMAVERT [Suspect]
     Active Substance: PEGVISOMANT
     Indication: Gigantism
     Dosage: UP TO 30MG/DAY BUT START WITH 10MG/DAY + INCREASE BY 5MG Q 4-6 WKS
  2. SOMAVERT [Suspect]
     Active Substance: PEGVISOMANT
     Dosage: 10 MG, 1X/DAY (10 MG SC QD)
     Route: 058

REACTIONS (2)
  - Insulin-like growth factor abnormal [Unknown]
  - Off label use [Unknown]
